FAERS Safety Report 16936772 (Version 1)
Quarter: 2019Q4

REPORT INFORMATION
  Report Type: Spontaneous
  Country: US (occurrence: US)
  Receive Date: 20191018
  Receipt Date: 20191018
  Transmission Date: 20200122
  Serious: Yes (Hospitalization, Other)
  Sender: FDA-Public Use
  Company Number: US-SA-2019SA284439

PATIENT
  Age: 39 Year
  Sex: Male

DRUGS (2)
  1. ALEMTUZUMAB [Suspect]
     Active Substance: ALEMTUZUMAB
     Dosage: UNK
     Route: 041
  2. ALEMTUZUMAB [Suspect]
     Active Substance: ALEMTUZUMAB
     Indication: RELAPSING-REMITTING MULTIPLE SCLEROSIS
     Dosage: UNK
     Route: 041

REACTIONS (14)
  - Portal hypertension [Recovering/Resolving]
  - Pneumonia [Recovering/Resolving]
  - Pleural effusion [Recovering/Resolving]
  - Abdominal pain [Recovering/Resolving]
  - Acute kidney injury [Recovering/Resolving]
  - Pyrexia [Recovering/Resolving]
  - Generalised oedema [Recovering/Resolving]
  - Encephalopathy [Recovering/Resolving]
  - Adrenal insufficiency [Recovering/Resolving]
  - Asthenia [Recovering/Resolving]
  - Haemorrhagic adrenal infarction [Recovering/Resolving]
  - Sepsis [Recovering/Resolving]
  - Multiple organ dysfunction syndrome [Recovering/Resolving]
  - Immune thrombocytopenic purpura [Recovered/Resolved]
